FAERS Safety Report 11733777 (Version 1)
Quarter: 2015Q4

REPORT INFORMATION
  Report Type: Spontaneous
  Country: US (occurrence: US)
  Receive Date: 20151110
  Receipt Date: 20151110
  Transmission Date: 20160304
  Serious: No
  Sender: FDA-Public Use
  Company Number: US-ELI_LILLY_AND_COMPANY-US201205005099

PATIENT
  Sex: Female

DRUGS (4)
  1. FORTEO [Suspect]
     Active Substance: TERIPARATIDE
     Dosage: 20 UG, QD
  2. PREDNISONE. [Concomitant]
     Active Substance: PREDNISONE
     Indication: VIRAL INFECTION
  3. CIPRO [Concomitant]
     Active Substance: CIPROFLOXACIN HYDROCHLORIDE
     Indication: COUGH
  4. FORTEO [Suspect]
     Active Substance: TERIPARATIDE
     Indication: OSTEOPOROSIS
     Dosage: 20 UG, QD
     Route: 065
     Dates: start: 20120419

REACTIONS (6)
  - Oropharyngeal pain [Unknown]
  - Feeling hot [Unknown]
  - Malaise [Unknown]
  - Haemorrhage [Unknown]
  - Urinary tract infection [Unknown]
  - Constipation [Recovering/Resolving]
